FAERS Safety Report 5118792-5 (Version None)
Quarter: 2006Q4

REPORT INFORMATION
  Report Type: 
  Country: None (occurrence: None)
  Receive Date: 20061002
  Receipt Date: 20060927
  Transmission Date: 20070319
  Serious: Yes (Hospitalization)
  Sender: FDA-Public Use
  Company Number: IT-ROCHE-464849

PATIENT
  Age: 64 Year
  Sex: Male

DRUGS (1)
  1. ROCEPHIN [Suspect]
     Indication: DRUG USE FOR UNKNOWN INDICATION
     Dosage: FROM REPORTED AS VIAL.
     Route: 042
     Dates: start: 20060921, end: 20060922

REACTIONS (1)
  - ERYTHEMA [None]
